FAERS Safety Report 6433323-5 (Version None)
Quarter: 2009Q4

REPORT INFORMATION
  Report Type: 
  Country: None (occurrence: None)
  Receive Date: 20091109
  Receipt Date: 20091104
  Transmission Date: 20100525
  Serious: Yes (Death, Other)
  Sender: FDA-Public Use
  Company Number: PHHY2009JP48060

PATIENT
  Age: 55 Year
  Sex: Female

DRUGS (10)
  1. CYCLOSPORINE [Suspect]
     Indication: PROPHYLAXIS AGAINST GRAFT VERSUS HOST DISEASE
     Dosage: UNK
     Dates: start: 20081201
  2. CYCLOSPORINE [Suspect]
     Indication: CORD BLOOD TRANSPLANT THERAPY
  3. MYCOPHENOLATE MOFETIL [Concomitant]
     Indication: PROPHYLAXIS AGAINST GRAFT VERSUS HOST DISEASE
  4. GEMTUZUMAB OZOGAMICIN [Concomitant]
     Indication: CORD BLOOD TRANSPLANT THERAPY
     Dosage: 6 MG/M2
  5. GEMTUZUMAB OZOGAMICIN [Concomitant]
     Dosage: 3 MG/M2
  6. FLUDARABINE [Concomitant]
     Indication: CORD BLOOD TRANSPLANT THERAPY
     Dosage: 25 MG/M2
  7. MELPHALAN [Concomitant]
     Indication: CORD BLOOD TRANSPLANT THERAPY
     Dosage: 40 MG/M2
  8. CYTOSINE ARABINOSIDE [Concomitant]
     Indication: CORD BLOOD TRANSPLANT THERAPY
  9. RADIATION THERAPY [Concomitant]
     Indication: CORD BLOOD TRANSPLANT THERAPY
     Dosage: 2 GY
  10. LMWH [Concomitant]
     Indication: PROPHYLAXIS

REACTIONS (6)
  - ACUTE GRAFT VERSUS HOST DISEASE [None]
  - BLOOD BILIRUBIN INCREASED [None]
  - LEUKAEMIA RECURRENT [None]
  - PYREXIA [None]
  - TRANSAMINASES INCREASED [None]
  - WEIGHT INCREASED [None]
